FAERS Safety Report 5010940-0 (Version None)
Quarter: 2006Q2

REPORT INFORMATION
  Report Type: 
  Country: None (occurrence: None)
  Receive Date: 20060525
  Receipt Date: 20060517
  Transmission Date: 20061013
  Serious: Yes (Hospitalization)
  Sender: FDA-Public Use
  Company Number: GB-AVENTIS-200615431GDDC

PATIENT
  Age: 87 Year

DRUGS (2)
  1. METRONIDAZOLE [Suspect]
     Indication: CLOSTRIDIUM COLITIS
     Route: 048
     Dates: start: 20060412, end: 20060425
  2. AUGMENTIN '125' [Concomitant]
     Route: 048
     Dates: start: 20060402, end: 20060412

REACTIONS (3)
  - HYPOAESTHESIA [None]
  - NEUROPATHY [None]
  - PAIN IN EXTREMITY [None]
